FAERS Safety Report 8315637-7 (Version None)
Quarter: 2012Q2

REPORT INFORMATION
  Report Type: 
  Country: None (occurrence: None)
  Receive Date: 20120426
  Receipt Date: 20120417
  Transmission Date: 20120825
  Serious: Yes (Hospitalization, Other)
  Sender: FDA-Public Use
  Company Number: CA-ROCHE-1060003

PATIENT
  Sex: Female
  Weight: 74.2 kg

DRUGS (21)
  1. VENTOLIN [Concomitant]
     Dosage: FOUR TIMES DAILY AS REQUIRED.
     Route: 055
     Dates: start: 20040401
  2. LYRICA [Concomitant]
     Indication: RHEUMATOID ARTHRITIS
     Route: 048
     Dates: start: 20090326
  3. ZOLOFT [Concomitant]
     Indication: DEPRESSION
     Route: 048
     Dates: start: 20090326
  4. CIPRODEX (CANADA) [Concomitant]
     Dosage: DOSE , FOUR DROPS.
     Dates: start: 20120202, end: 20120208
  5. HYDROCHLOROTHIAZIDE [Concomitant]
     Route: 048
  6. NASONEX [Concomitant]
     Route: 045
  7. NEXIUM [Concomitant]
     Indication: GASTROOESOPHAGEAL REFLUX DISEASE
     Route: 048
  8. ZOLOFT [Concomitant]
     Dates: start: 20111022
  9. SYMBICORT [Concomitant]
     Indication: PNEUMONIA
     Route: 055
     Dates: start: 20111101
  10. SEROQUEL [Concomitant]
     Route: 048
     Dates: start: 20100527
  11. BIAXIN (CANADA) [Concomitant]
     Route: 048
     Dates: start: 20120125, end: 20120203
  12. REACTINE (CANADA) [Concomitant]
     Indication: HYPERSENSITIVITY
     Route: 048
     Dates: start: 20110701
  13. FLOMAX [Concomitant]
     Dosage: AS REQUIRED.
     Route: 048
     Dates: start: 20110623
  14. FOLIC ACID [Concomitant]
     Route: 048
  15. DESONIDE [Concomitant]
     Route: 061
     Dates: start: 20110712
  16. ACTEMRA [Suspect]
     Indication: RHEUMATOID ARTHRITIS
     Route: 042
     Dates: start: 20111213, end: 20120404
  17. CALCIUM [Concomitant]
     Route: 048
  18. CRESTOR [Concomitant]
     Route: 048
     Dates: start: 20110826
  19. VENOFER [Concomitant]
     Route: 042
     Dates: start: 20120320, end: 20120410
  20. XALATAN [Concomitant]
     Indication: GLAUCOMA
     Dosage: DOSE, ONE DROP IN LEFT EYE
     Route: 047
     Dates: start: 20101001
  21. VENOFER [Concomitant]

REACTIONS (2)
  - BACTERIAL INFECTION [None]
  - INFARCTION [None]
